APPROVED DRUG PRODUCT: ESZOPICLONE
Active Ingredient: ESZOPICLONE
Strength: 1MG
Dosage Form/Route: TABLET;ORAL
Application: A206222 | Product #001
Applicant: IPCA LABORATORIES LTD
Approved: Dec 29, 2023 | RLD: No | RS: No | Type: DISCN